FAERS Safety Report 4430489-3 (Version None)
Quarter: 2004Q3

REPORT INFORMATION
  Report Type: 
  Country: None (occurrence: None)
  Receive Date: 20040721
  Receipt Date: 20031223
  Transmission Date: 20050211
  Serious: Yes (Other)
  Sender: FDA-Public Use
  Company Number: WAES0312USA02358

PATIENT
  Age: 90 Year
  Sex: Female
  Weight: 59.8748 kg

DRUGS (5)
  1. VIOXX [Suspect]
     Indication: ARTHRITIS
     Dosage: 12.5 MG/DAILY/PO
     Route: 048
     Dates: start: 19991226, end: 20000107
  2. DIAZIDE [Concomitant]
  3. LANOXIN [Concomitant]
  4. ASPIRIN [Concomitant]
  5. THYROID TAB [Concomitant]

REACTIONS (1)
  - HALLUCINATION, VISUAL [None]
